FAERS Safety Report 7783194-X (Version None)
Quarter: 2011Q3

REPORT INFORMATION
  Report Type: 
  Country: None (occurrence: None)
  Receive Date: 20110928
  Receipt Date: 20100203
  Transmission Date: 20111222
  Serious: No
  Sender: FDA-Public Use
  Company Number: US-MYLANLABS-2010S1001077

PATIENT
  Age: 79 Year
  Sex: Female

DRUGS (5)
  1. ATENOLOL [Concomitant]
  2. NITRGLYCERIN TRANSDERMAL SYSTEM [Suspect]
     Indication: ANGINA PECTORIS
     Dosage: CHANGED Q12H
     Route: 062
     Dates: start: 20100114, end: 20100117
  3. PLAVIX [Concomitant]
  4. ASPIRIN [Concomitant]
  5. CRESTOR [Concomitant]

REACTIONS (2)
  - DIZZINESS [None]
  - ABDOMINAL DISCOMFORT [None]
